FAERS Safety Report 7585528-8 (Version None)
Quarter: 2011Q3

REPORT INFORMATION
  Report Type: 
  Country: None (occurrence: None)
  Receive Date: 20110701
  Receipt Date: 20110624
  Transmission Date: 20111222
  Serious: Yes (Other)
  Sender: FDA-Public Use
  Company Number: BE-AMGEN-BELSP2011032490

PATIENT
  Age: 71 Year
  Sex: Female
  Weight: 58 kg

DRUGS (3)
  1. ANTIHISTAMINES [Concomitant]
  2. ANTINEOPLASTIC AGENTS [Concomitant]
  3. NEULASTA [Suspect]
     Indication: CHEMOTHERAPY
     Dosage: 6 MG, ONE TIME DOSE
     Dates: start: 20100607, end: 20100607

REACTIONS (7)
  - PARESIS [None]
  - INCONTINENCE [None]
  - HEADACHE [None]
  - ARTHRALGIA [None]
  - FAECAL INCONTINENCE [None]
  - PARAPARESIS [None]
  - MYALGIA [None]
